FAERS Safety Report 10869170 (Version 2)
Quarter: 2015Q1

REPORT INFORMATION
  Report Type: Report from Study
  Country: US (occurrence: US)
  Receive Date: 20150225
  Receipt Date: 20150307
  Transmission Date: 20150721
  Serious: Yes (Hospitalization)
  Sender: FDA-Public Use
  Company Number: US-MERCK-1502USA011063

PATIENT
  Age: 35 Year
  Sex: Male
  Weight: 68 kg

DRUGS (6)
  1. CYTARABINE. [Suspect]
     Active Substance: CYTARABINE
     Indication: ACUTE MYELOID LEUKAEMIA
     Dosage: 750 MG/M2/DAY CONTINUOUS IV INFUSION ON DAYS 4-6
     Route: 042
     Dates: start: 20150206, end: 20150208
  2. VORINOSTAT [Suspect]
     Active Substance: VORINOSTAT
     Dosage: 500 MG, TID, PO ON DAYS 1-3 (INDUCTION-REINDUCTION CYCLE 28 DAYS)
     Route: 048
     Dates: start: 20141222, end: 20141224
  3. CYTARABINE. [Suspect]
     Active Substance: CYTARABINE
     Dosage: 1500 MG/M2/DAY CONTINUOS IV INFUSION ON DAYS 4-7
     Route: 042
     Dates: start: 20141225, end: 20141228
  4. VORINOSTAT [Suspect]
     Active Substance: VORINOSTAT
     Indication: ACUTE MYELOID LEUKAEMIA
     Dosage: 500 MG, TID, PO ON DAYS 1-3 (CONSOLIDATION CYCLE 28 DAYS)
     Route: 048
     Dates: start: 20150203, end: 20150205
  5. IDARUBICIN [Suspect]
     Active Substance: IDARUBICIN
     Indication: ACUTE MYELOID LEUKAEMIA
     Dosage: 8 MG/M2/DAY IV OVER 15 MIN ON DAYS 4-5
     Route: 042
     Dates: start: 20150206, end: 20150207
  6. IDARUBICIN [Suspect]
     Active Substance: IDARUBICIN
     Dosage: 12 MG/M2/DAY IV OVER 15 MIN ON DAYS 4-6
     Route: 042
     Dates: start: 20141225, end: 20141227

REACTIONS (2)
  - Myocardial infarction [Not Recovered/Not Resolved]
  - Febrile neutropenia [Not Recovered/Not Resolved]

NARRATIVE: CASE EVENT DATE: 20150216
